FAERS Safety Report 20158168 (Version 3)
Quarter: 2022Q1

REPORT INFORMATION
  Report Type: Spontaneous
  Country: US (occurrence: US)
  Receive Date: 20211207
  Receipt Date: 20220120
  Transmission Date: 20220423
  Serious: No
  Sender: FDA-Public Use
  Company Number: US-SANOFI-00877771

PATIENT
  Sex: Male

DRUGS (1)
  1. TOUJEO [Suspect]
     Active Substance: INSULIN GLARGINE
     Dosage: 18 IU, QD
     Route: 065

REACTIONS (3)
  - Injection site extravasation [Unknown]
  - Injection site swelling [Unknown]
  - Device issue [Unknown]

NARRATIVE: CASE EVENT DATE: 20210101
